FAERS Safety Report 7742563 (Version 4)
Quarter: 2013Q1

REPORT INFORMATION
  Report Type: Spontaneous
  Country: US (occurrence: US)
  Receive Date: 20101229
  Receipt Date: 20130128
  Transmission Date: 20140127
  Serious: Yes (Hospitalization)
  Sender: FDA-Public Use
  Company Number: US-BAYER-2010-006491

PATIENT
  Age: 47 Year
  Sex: Female
  Weight: 73 kg

DRUGS (6)
  1. YAZ [Suspect]
     Indication: MENORRHAGIA
     Dosage: UNK
     Route: 048
     Dates: start: 200611, end: 200712
  2. YAZ [Suspect]
     Indication: METRORRHAGIA
  3. EFFEXOR [Concomitant]
     Dosage: UNK
     Dates: start: 2006, end: 200812
  4. WELLBUTRIN [Concomitant]
     Dosage: UNK
     Dates: start: 2000
  5. ZYRTEC [Concomitant]
     Dosage: UNK
     Dates: start: 2000
  6. BUSPAR [Concomitant]
     Dosage: 7.5 MG, BID
     Route: 048

REACTIONS (8)
  - Pulmonary embolism [None]
  - Dyspnoea [None]
  - Pain [None]
  - Depression [None]
  - Anxiety [None]
  - Emotional distress [None]
  - Chest pain [None]
  - Off label use [None]
